FAERS Safety Report 9624854 (Version 1)
Quarter: 2013Q4

REPORT INFORMATION
  Report Type: Spontaneous
  Country: US (occurrence: US)
  Receive Date: 20131016
  Receipt Date: 20131016
  Transmission Date: 20140711
  Serious: Yes (Hospitalization)
  Sender: FDA-Public Use
  Company Number: US-AMGEN-USASP2013071831

PATIENT
  Age: 45 Year
  Sex: Female
  Weight: 95.24 kg

DRUGS (4)
  1. PROCRIT [Suspect]
     Indication: ANAEMIA
     Dosage: 30000 UNIT, QWK
     Route: 058
  2. AMITIZA [Concomitant]
     Indication: PRODUCT USED FOR UNKNOWN INDICATION
     Dosage: 24 MUG, QD
     Route: 048
     Dates: start: 2013
  3. BOSULIF [Concomitant]
     Dosage: 500 MG, QD
     Route: 048
     Dates: start: 2013
  4. CHEMOTHERAPEUTICS [Concomitant]
     Dosage: UNK

REACTIONS (6)
  - Gait disturbance [Unknown]
  - Skin discolouration [Unknown]
  - Flank pain [Unknown]
  - Lung infection [Unknown]
  - Pyrexia [Unknown]
  - Full blood count increased [Unknown]
